FAERS Safety Report 4295948-5 (Version None)
Quarter: 2004Q1

REPORT INFORMATION
  Report Type: 
  Country: None (occurrence: None)
  Receive Date: 20040212
  Receipt Date: 20040202
  Transmission Date: 20041129
  Serious: Yes (Life-Threatening, Hospitalization)
  Sender: FDA-Public Use
  Company Number: 04P-167-0249319-00

PATIENT
  Age: 36 Year
  Sex: Female
  Weight: 64 kg

DRUGS (2)
  1. MERIDIA [Suspect]
     Indication: WEIGHT CONTROL
     Dosage: PER ORAL
     Route: 048
     Dates: start: 20020121, end: 20030303
  2. TEMAZEPAM [Concomitant]

REACTIONS (1)
  - BREAST CANCER [None]
